FAERS Safety Report 9127839 (Version 1)
Quarter: 2013Q1

REPORT INFORMATION
  Report Type: Spontaneous
  Country: FR (occurrence: FR)
  Receive Date: 20130122
  Receipt Date: 20130122
  Transmission Date: 20140127
  Serious: Yes (Hospitalization, Other)
  Sender: FDA-Public Use
  Company Number: FR-009507513-1301FRA005684

PATIENT
  Age: 55 Year
  Sex: Male

DRUGS (10)
  1. ISENTRESS [Suspect]
     Indication: HIV INFECTION
     Dosage: 400 MG, BID
     Route: 048
     Dates: start: 20090113
  2. PREZISTA [Suspect]
     Indication: HIV INFECTION
     Dosage: 600 MG, BID
     Route: 048
     Dates: start: 20090113
  3. PREZISTA [Suspect]
     Dosage: UNK
  4. TRUVADA [Suspect]
     Indication: HIV INFECTION
     Dosage: 1 DF, QD
     Route: 048
     Dates: start: 20090113
  5. NORVIR [Suspect]
     Indication: HIV INFECTION
     Dosage: 600 MG, BID
     Route: 048
     Dates: start: 20090113
  6. FRACTAL [Concomitant]
     Dosage: UNK
     Dates: start: 200703
  7. VALDOXAN [Concomitant]
     Dosage: UNK
  8. LEXOMIL [Concomitant]
     Dosage: UNK
  9. STILNOX [Concomitant]
     Dosage: UNK
  10. ATHYMIL [Concomitant]
     Dosage: UNK
     Dates: start: 201109

REACTIONS (1)
  - Deafness [Not Recovered/Not Resolved]
